FAERS Safety Report 4539397-0 (Version None)
Quarter: 2004Q4

REPORT INFORMATION
  Report Type: 
  Country: None (occurrence: None)
  Receive Date: 20041227
  Receipt Date: 20041227
  Transmission Date: 20050328
  Serious: Yes (Life-Threatening)
  Sender: FDA-Public Use
  Company Number: None

PATIENT
  Sex: Female
  Weight: 66.6788 kg

DRUGS (24)
  1. METFORMIN HCL [Suspect]
     Indication: DIABETES MELLITUS
     Dosage: 1000 MG BID
     Dates: start: 20040607, end: 20041219
  2. LEVOTHYROXINE (SYNTHR [Concomitant]
  3. TENORMIN [Concomitant]
  4. LATANOPROST 0/005% OPTH XALANTAN [Concomitant]
  5. CALCIUM CARB/VIT D [Concomitant]
  6. FERROUS SULFATE TAB [Concomitant]
  7. ZOLOFT [Concomitant]
  8. LASIX [Concomitant]
  9. VASOTEC [Concomitant]
  10. INSULIN HUMAN R [Concomitant]
  11. ASCORBIC ACID (VIT C) [Concomitant]
  12. CHEMSTRIP TEST STRIPS [Concomitant]
  13. LITHUIM CARB [Concomitant]
  14. NITROGLYCERIN [Concomitant]
  15. TYLENOL [Concomitant]
  16. METFORMIN HCL [Concomitant]
  17. VITAMIN E [Concomitant]
  18. DORZOLAMIDE(TRUSOPT) [Concomitant]
  19. GLUCOTROL [Concomitant]
  20. BLOOD PRESSURE WEEKLY [Concomitant]
  21. AVANDIA [Concomitant]
  22. TYLENOL [Concomitant]
  23. NEURONTIN [Concomitant]
  24. TYLENOL W/ CODEINE NO. 3 [Concomitant]

REACTIONS (5)
  - ACUTE MYOCARDIAL INFARCTION [None]
  - HYPERKALAEMIA [None]
  - LACTIC ACIDOSIS [None]
  - RENAL FAILURE [None]
  - THERAPEUTIC AGENT TOXICITY [None]
